FAERS Safety Report 19715450 (Version 1)
Quarter: 2021Q3

REPORT INFORMATION
  Report Type: Spontaneous
  Country: US (occurrence: US)
  Receive Date: 20210818
  Receipt Date: 20210818
  Transmission Date: 20211014
  Serious: Yes (Other)
  Sender: FDA-Public Use
  Company Number: US-JNJFOC-20210830420

PATIENT
  Age: 21 Year
  Sex: Male

DRUGS (1)
  1. MENS ROGAINE [Suspect]
     Active Substance: MINOXIDIL
     Indication: ALOPECIA
     Dosage: A LITTLE BIT MORE THAN WHAT IS DIRECTED
     Route: 061
     Dates: start: 20160102

REACTIONS (7)
  - Palpitations [Not Recovered/Not Resolved]
  - Systemic lupus erythematosus [Recovered/Resolved]
  - Nephropathy [Recovered/Resolved]
  - Extra dose administered [Unknown]
  - Dizziness [Not Recovered/Not Resolved]
  - Orthopnoea [Not Recovered/Not Resolved]
  - Chest pain [Not Recovered/Not Resolved]

NARRATIVE: CASE EVENT DATE: 20160102
